FAERS Safety Report 18442663 (Version 1)
Quarter: 2020Q4

REPORT INFORMATION
  Report Type: Spontaneous
  Country: GB (occurrence: GB)
  Receive Date: 20201029
  Receipt Date: 20201029
  Transmission Date: 20210114
  Serious: Yes (Other)
  Sender: FDA-Public Use
  Company Number: GB-MYLANLABS-2020M1091192

PATIENT
  Sex: Male

DRUGS (2)
  1. CLOZAPINE. [Suspect]
     Active Substance: CLOZAPINE
     Indication: SCHIZOPHRENIA
     Dosage: UNK
  2. CLOZAPINE. [Suspect]
     Active Substance: CLOZAPINE
     Dosage: UNK

REACTIONS (6)
  - Mental impairment [Recovering/Resolving]
  - Anxiety [Recovering/Resolving]
  - Intentional self-injury [Recovering/Resolving]
  - Apathy [Recovering/Resolving]
  - Sexually inappropriate behaviour [Recovering/Resolving]
  - Agitation [Recovering/Resolving]
